FAERS Safety Report 21747285 (Version 1)
Quarter: 2022Q4

REPORT INFORMATION
  Report Type: Spontaneous
  Country: US (occurrence: US)
  Receive Date: 20221219
  Receipt Date: 20221219
  Transmission Date: 20230113
  Serious: Yes (Other)
  Sender: FDA-Public Use
  Company Number: US-BAYER-2022A168877

PATIENT
  Sex: Male

DRUGS (1)
  1. ALEVE [Suspect]
     Active Substance: NAPROXEN SODIUM
     Indication: Product used for unknown indication
     Dosage: UNK, TWO TABLETS IN THE MORNING AND TWO TABLETS AT NIGHT
     Route: 048

REACTIONS (3)
  - Haematochezia [Unknown]
  - Abnormal faeces [Unknown]
  - Off label use [Unknown]

NARRATIVE: CASE EVENT DATE: 20221201
